FAERS Safety Report 9315272 (Version 1)
Quarter: 2013Q2

REPORT INFORMATION
  Report Type: Other
  Country: GB (occurrence: GB)
  Receive Date: 20130529
  Receipt Date: 20130529
  Transmission Date: 20140414
  Serious: Yes (Other)
  Sender: FDA-Public Use
  Company Number: GB-WATSON-2013-08827

PATIENT
  Age: 62 Year
  Sex: Male
  Weight: 79 kg

DRUGS (3)
  1. TERBINAFINE HYDROCHLORIDE (UNKNOWN) [Suspect]
     Indication: ONYCHOMYCOSIS
     Dosage: 250 MG, DAILY
     Route: 048
     Dates: start: 201211, end: 20130211
  2. FLIXONASE [Concomitant]
     Indication: SNORING
     Dosage: 6 DROPS PER NOSTRIL PER DAY, 400 MICROGRAMS
     Route: 045
     Dates: start: 20130105, end: 20130130
  3. MULTIVITAMIN                       /00097801/ [Concomitant]
     Indication: PRODUCT USED FOR UNKNOWN INDICATION
     Dosage: UNK
     Route: 065

REACTIONS (4)
  - Dysgeusia [Recovering/Resolving]
  - Limb discomfort [Not Recovered/Not Resolved]
  - Weight decreased [Unknown]
  - Therapeutic response unexpected [Unknown]
